FAERS Safety Report 8081931-0 (Version None)
Quarter: 2012Q1

REPORT INFORMATION
  Report Type: 
  Country: None (occurrence: None)
  Receive Date: 20120130
  Receipt Date: 20110531
  Transmission Date: 20120608
  Serious: No
  Sender: FDA-Public Use
  Company Number: US-ABBOTT-11P-163-0729479-00

PATIENT
  Age: 67 Year
  Sex: Male

DRUGS (5)
  1. BICALUTAMIDE [Concomitant]
     Indication: PRODUCT USED FOR UNKNOWN INDICATION
  2. LEUPROLIDE ACETATE [Suspect]
  3. LEUPROLIDE ACETATE [Suspect]
     Indication: PROSTATE CANCER
  4. ACETYLSALICYLIC ACID SRT [Concomitant]
     Indication: PRODUCT USED FOR UNKNOWN INDICATION
     Dosage: DAILY
  5. NONSTEROIDAL ANTI-ANDROGEN [Concomitant]
     Indication: PRODUCT USED FOR UNKNOWN INDICATION

REACTIONS (4)
  - FATIGUE [None]
  - ASTHENIA [None]
  - FLUSHING [None]
  - LOSS OF LIBIDO [None]
